FAERS Safety Report 25219859 (Version 2)
Quarter: 2025Q3

REPORT INFORMATION
  Report Type: Report from Study
  Country: US (occurrence: US)
  Receive Date: 20250421
  Receipt Date: 20250809
  Transmission Date: 20251021
  Serious: Yes (Other)
  Sender: ALEXION PHARMACEUTICALS
  Company Number: US-AstraZeneca-CH-00850220A

PATIENT
  Sex: Female

DRUGS (1)
  1. OSIMERTINIB [Suspect]
     Active Substance: OSIMERTINIB
     Indication: Lung neoplasm malignant
     Dates: start: 20190210

REACTIONS (9)
  - Neuropathy peripheral [Unknown]
  - Productive cough [Unknown]
  - Pyrexia [Unknown]
  - Wheezing [Unknown]
  - Asthenia [Unknown]
  - Malaise [Unknown]
  - Cough [Unknown]
  - Respiratory tract congestion [Unknown]
  - Decreased activity [Unknown]
